FAERS Safety Report 7722361 (Version 3)
Quarter: 2022Q2

REPORT INFORMATION
  Report Type: Spontaneous
  Country: FR (occurrence: FR)
  Receive Date: 20101220
  Receipt Date: 20220505
  Transmission Date: 20220721
  Serious: Yes (Hospitalization, Other)
  Sender: FDA-Public Use
  Company Number: PHHY2010FR84053

PATIENT
  Age: 58 Year
  Sex: Female
  Weight: 114 kg

DRUGS (17)
  1. METFORMIN HYDROCHLORIDE\VILDAGLIPTIN [Suspect]
     Active Substance: METFORMIN HYDROCHLORIDE\VILDAGLIPTIN
     Indication: Diabetic metabolic decompensation
     Dosage: 1 DOSAGE FORM, BID
     Route: 048
     Dates: start: 20101020, end: 20101026
  2. METFORMIN HYDROCHLORIDE\VILDAGLIPTIN [Suspect]
     Active Substance: METFORMIN HYDROCHLORIDE\VILDAGLIPTIN
     Indication: Type 2 diabetes mellitus
  3. LAMISIL [Suspect]
     Active Substance: TERBINAFINE HYDROCHLORIDE
     Indication: Fungal infection
     Dosage: 1 DF, TID
     Route: 065
     Dates: start: 20101005, end: 20101026
  4. BIFONAZOLE [Suspect]
     Active Substance: BIFONAZOLE
     Indication: Fungal infection
     Dosage: UNK
     Route: 061
     Dates: start: 20101005, end: 20101026
  5. BIFONAZOLE [Suspect]
     Active Substance: BIFONAZOLE
     Indication: Fungal infection
  6. CLOBETASOL PROPIONATE [Suspect]
     Active Substance: CLOBETASOL PROPIONATE
     Indication: Fungal infection
     Dosage: 2 DOSAGE FORM, BID
     Route: 061
     Dates: start: 20101005, end: 20101026
  7. CLOBETASOL PROPIONATE [Suspect]
     Active Substance: CLOBETASOL PROPIONATE
     Indication: Fungal infection
  8. GLUCOR [Suspect]
     Active Substance: ACARBOSE
     Indication: Diabetes mellitus
     Dosage: 1 DF, BID
     Route: 065
     Dates: start: 20101020, end: 20101026
  9. GLUCOR [Suspect]
     Active Substance: ACARBOSE
     Indication: Type 2 diabetes mellitus
     Dosage: 100 MG, BID
     Route: 048
     Dates: start: 20101020, end: 20101026
  10. EZETIMIBE\SIMVASTATIN [Suspect]
     Active Substance: EZETIMIBE\SIMVASTATIN
     Indication: Hypercholesterolaemia
     Dosage: 1 DF, QD
     Route: 048
     Dates: start: 20101020, end: 20101026
  11. EZETIMIBE\SIMVASTATIN [Suspect]
     Active Substance: EZETIMIBE\SIMVASTATIN
     Indication: Dyslipidaemia
  12. CEFTRIAXONE SODIUM [Suspect]
     Active Substance: CEFTRIAXONE SODIUM
     Indication: Pneumonia
     Dosage: UNK
     Route: 030
     Dates: start: 20101020, end: 20101026
  13. CELESTAMINE [Suspect]
     Active Substance: BETAMETHASONE\DEXCHLORPHENIRAMINE MALEATE
     Indication: Pruritus
     Dosage: 3 (UNITS UNSPECIFIED)
     Route: 065
     Dates: start: 20101020, end: 20101026
  14. CELESTAMINE [Suspect]
     Active Substance: BETAMETHASONE\DEXCHLORPHENIRAMINE MALEATE
     Dosage: 3 DOSES DAILY
     Route: 048
     Dates: start: 20101020, end: 20101026
  15. FUSIDATE SODIUM [Suspect]
     Active Substance: FUSIDATE SODIUM
     Indication: Paronychia
     Dosage: UNK
     Route: 061
     Dates: start: 20101020, end: 20101026
  16. FUSIDATE SODIUM [Suspect]
     Active Substance: FUSIDATE SODIUM
     Indication: Paronychia
  17. LEVOTHYROXINE [Concomitant]
     Active Substance: LEVOTHYROXINE
     Indication: Product used for unknown indication
     Dosage: UNK
     Route: 048

REACTIONS (7)
  - Acute generalised exanthematous pustulosis [Recovered/Resolved with Sequelae]
  - Skin exfoliation [Recovered/Resolved]
  - Pain [Unknown]
  - Localised oedema [Recovered/Resolved]
  - Hyperthermia [Recovered/Resolved]
  - Lymphadenopathy [Unknown]
  - Tachycardia [Unknown]

NARRATIVE: CASE EVENT DATE: 20101001
